FAERS Safety Report 21444310 (Version 1)
Quarter: 2022Q4

REPORT INFORMATION
  Report Type: Report from Study
  Country: US (occurrence: US)
  Receive Date: 20221012
  Receipt Date: 20221012
  Transmission Date: 20230113
  Serious: Yes (Hospitalization, Other)
  Sender: FDA-Public Use
  Company Number: US-ABBVIE-4149729

PATIENT
  Age: 59 Year
  Sex: Male

DRUGS (1)
  1. HUMIRA [Suspect]
     Active Substance: ADALIMUMAB
     Indication: Psoriasis
     Dosage: CF PEN
     Route: 058

REACTIONS (6)
  - Salmonella sepsis [Unknown]
  - Hepatic cirrhosis [Unknown]
  - COVID-19 [Unknown]
  - Blood glucose increased [Unknown]
  - Acute kidney injury [Unknown]
  - Hypertension [Unknown]

NARRATIVE: CASE EVENT DATE: 20220620
